FAERS Safety Report 24188245 (Version 1)
Quarter: 2024Q3

REPORT INFORMATION
  Report Type: Spontaneous
  Country: US (occurrence: US)
  Receive Date: 20240808
  Receipt Date: 20240808
  Transmission Date: 20241016
  Serious: Yes (Other)
  Sender: OTSUKA
  Company Number: US-OTSUKA-2023_021838

PATIENT
  Age: 18 Year
  Sex: Female
  Weight: 102.49 kg

DRUGS (3)
  1. ABILIFY [Suspect]
     Active Substance: ARIPIPRAZOLE
     Indication: Mood swings
     Dosage: 5 MG, ONCE DAILY
     Route: 065
     Dates: end: 202307
  2. ABILIFY [Suspect]
     Active Substance: ARIPIPRAZOLE
     Indication: Aggression
  3. ABILIFY [Suspect]
     Active Substance: ARIPIPRAZOLE
     Indication: Agitation

REACTIONS (2)
  - Tardive dyskinesia [Unknown]
  - Product use in unapproved indication [Unknown]

NARRATIVE: CASE EVENT DATE: 20230711
